FAERS Safety Report 16042566 (Version 1)
Quarter: 2019Q1

REPORT INFORMATION
  Report Type: Spontaneous
  Country: NL (occurrence: NL)
  Receive Date: 20190306
  Receipt Date: 20190306
  Transmission Date: 20190418
  Serious: Yes (Other)
  Sender: FDA-Public Use
  Company Number: NL-MYLANLABS-2019M1020072

PATIENT
  Age: 50 Year
  Sex: Male

DRUGS (7)
  1. LOSARTAN. [Concomitant]
     Active Substance: LOSARTAN
     Dosage: 50 MILLIGRAM, QD(1 X DAAGS 1 TABLET ^S MORGENS)
     Route: 065
     Dates: start: 20130802
  2. PRAVASTATIN. [Suspect]
     Active Substance: PRAVASTATIN
     Indication: CARDIOVASCULAR EVENT PROPHYLAXIS
     Dosage: 40 MILLIGRAM, QD(1X PER DAG 1 STUK)
     Route: 048
     Dates: start: 20180806, end: 20180817
  3. KALIUMLOSARTAN SANDOZ [Concomitant]
     Dosage: 25 MILLIGRAM, QD(1XDAAGS 1 TABLET)
     Route: 065
     Dates: start: 20171204
  4. COLECALCIFEROL [Concomitant]
     Active Substance: CHOLECALCIFEROL
     Dosage: UNK
     Route: 065
     Dates: start: 20180820
  5. ALFACALCIDOL [Concomitant]
     Active Substance: ALFACALCIDOL
     Dosage: 1 DOSAGE FORM(1 X DAAGS 1-2 CAPSULES)
     Route: 065
     Dates: start: 20130610
  6. TAMSULOSINE                        /01280301/ [Concomitant]
     Active Substance: TAMSULOSIN
     Dosage: UNK MILLIGRAM, QD(1 X DAAGS 1 CAPSULE)
     Dates: start: 20171018
  7. COLECALCIFEROL [Concomitant]
     Active Substance: CHOLECALCIFEROL
     Dosage: 2 DOSAGE FORM, BIWEEKLY(1 X/ 2WEKEN 2 AMPULLEN VAN 1 ML)
     Route: 065
     Dates: start: 20171018

REACTIONS (2)
  - Myalgia [Unknown]
  - Loss of consciousness [Recovered/Resolved]

NARRATIVE: CASE EVENT DATE: 20180813
